FAERS Safety Report 17625465 (Version 2)
Quarter: 2020Q2

REPORT INFORMATION
  Report Type: Report from Study
  Country: US (occurrence: US)
  Receive Date: 20200404
  Receipt Date: 20200429
  Transmission Date: 20200713
  Serious: Yes (Hospitalization, Other)
  Sender: FDA-Public Use
  Company Number: US-ROCHE-2573921

PATIENT
  Sex: Female

DRUGS (1)
  1. VALCYTE [Suspect]
     Active Substance: VALGANCICLOVIR HYDROCHLORIDE
     Indication: LUNG TRANSPLANT
     Dosage: NO PRESCRIBING DOSAGE
     Route: 048

REACTIONS (3)
  - Off label use [Unknown]
  - Upper gastrointestinal haemorrhage [Unknown]
  - Product use in unapproved indication [Unknown]
